FAERS Safety Report 9759625 (Version 1)
Quarter: 2013Q4

REPORT INFORMATION
  Report Type: Spontaneous
  Country: GB (occurrence: None)
  Receive Date: 20131212
  Receipt Date: 20131212
  Transmission Date: 20140711
  Serious: Yes (Disabling)
  Sender: FDA-Public Use
  Company Number: AUR-APL-2013-10287

PATIENT
  Age: 56 Year
  Sex: Male
  Weight: 102 kg

DRUGS (7)
  1. LEVETIRACETAM [Suspect]
     Indication: EPILEPSY
     Dosage: 1500 MG ( 750 MG, 2 IN 1 D), ORAL
     Route: 048
     Dates: start: 20130403, end: 20131118
  2. ASPIRIN ( ACETYLSALICYLIC ACID) [Concomitant]
  3. BISOPROLOL (BISOPROLOL) [Concomitant]
  4. CLOPIDOGREL ( CLOPIDOGREL) [Concomitant]
  5. INTERFERON ALFA ( INTERFERON ALFA) [Concomitant]
  6. RAMIPRIL ( RAMIPRIL) [Concomitant]
  7. SIMVASTATIN ( SIMVASTATIN) [Concomitant]

REACTIONS (4)
  - Alanine aminotransferase increased [None]
  - Gamma-glutamyltransferase increased [None]
  - Blood bilirubin increased [None]
  - Alpha 1 foetoprotein increased [None]
